FAERS Safety Report 10956443 (Version 2)
Quarter: 2015Q2

REPORT INFORMATION
  Report Type: Spontaneous
  Country: GB (occurrence: GB)
  Receive Date: 20150326
  Receipt Date: 20150416
  Transmission Date: 20150821
  Serious: Yes (Other)
  Sender: FDA-Public Use
  Company Number: GB-AMGEN-GBRSP2015028078

PATIENT
  Age: 78 Year
  Sex: Female

DRUGS (1)
  1. PROLIA [Suspect]
     Active Substance: DENOSUMAB
     Indication: OSTEOPOROSIS
     Dosage: UNK
     Route: 065
     Dates: start: 201405

REACTIONS (10)
  - Neoplasm malignant [Unknown]
  - Cellulitis [Unknown]
  - Drug dose omission [Unknown]
  - Arthropathy [Unknown]
  - Gait disturbance [Unknown]
  - Influenza like illness [Unknown]
  - Bone disorder [Unknown]
  - Memory impairment [Unknown]
  - Arthralgia [Unknown]
  - Pain in extremity [Unknown]
